FAERS Safety Report 8529292-4 (Version None)
Quarter: 2012Q3

REPORT INFORMATION
  Report Type: 
  Country: None (occurrence: None)
  Receive Date: 20120723
  Receipt Date: 20120717
  Transmission Date: 20120928
  Serious: No
  Sender: FDA-Public Use
  Company Number: US-PFIZER INC-2012173378

PATIENT
  Sex: Male

DRUGS (2)
  1. NEURONTIN [Suspect]
     Dosage: UNK
     Route: 048
  2. NEURONTIN [Suspect]
     Dosage: 3 CAPSULES

REACTIONS (3)
  - ANGER [None]
  - HYPOKINESIA [None]
  - PSYCHOMOTOR HYPERACTIVITY [None]
